FAERS Safety Report 23592735 (Version 2)
Quarter: 2024Q2

REPORT INFORMATION
  Report Type: Spontaneous
  Country: US (occurrence: US)
  Receive Date: 20240304
  Receipt Date: 20240419
  Transmission Date: 20240716
  Serious: Yes (Hospitalization)
  Sender: FDA-Public Use
  Company Number: US-PFIZER INC-PV202400029450

PATIENT
  Age: 81 Year
  Sex: Male
  Weight: 90.265 kg

DRUGS (17)
  1. XELJANZ XR [Suspect]
     Active Substance: TOFACITINIB CITRATE
     Indication: Osteoarthritis
     Dosage: UNK
  2. XELJANZ XR [Suspect]
     Active Substance: TOFACITINIB CITRATE
     Dosage: 11 MG, 1X/DAY
     Dates: start: 20240301
  3. ACTOS [Concomitant]
     Active Substance: PIOGLITAZONE HYDROCHLORIDE
     Dosage: 15 MG, 1X/DAY
     Route: 048
  4. ALLOPURINOL [Concomitant]
     Active Substance: ALLOPURINOL
     Dosage: 300 MG, 1X/DAY
     Route: 048
  5. AMBIEN CR [Concomitant]
     Active Substance: ZOLPIDEM TARTRATE
     Dosage: ROUTE EVERY DAY TAKING AS DIRECTED AT BEDTIMES AS NEEDED
     Route: 048
  6. B 12 [Concomitant]
     Dosage: 5000 MCG-100 MCG
     Route: 060
  7. EASYTOUCH ALCOHOL PREP PADS STERILE [Concomitant]
     Active Substance: ISOPROPYL ALCOHOL
     Dosage: 30 GAUGE X 5/16
     Route: 058
  8. HYDROCODONE [Concomitant]
     Active Substance: HYDROCODONE
     Indication: Pain
     Dosage: 10 MG, AS NEEDED
     Route: 048
  9. ACETAMINOPHEN [Concomitant]
     Active Substance: ACETAMINOPHEN
     Indication: Pain
     Dosage: 325 MG, AS NEEDED
     Route: 048
  10. LANTUS SOLOSTAR [Concomitant]
     Active Substance: INSULIN GLARGINE
     Dosage: U-100 INSULIN 100 UNIT/ML (3 ML)
     Route: 058
  11. METFORMIN HYDROCHLORIDE [Concomitant]
     Active Substance: METFORMIN HYDROCHLORIDE
     Dosage: WITH MORNING AND EVENING MEALS
     Route: 048
  12. PRAVASTATIN SODIUM [Concomitant]
     Active Substance: PRAVASTATIN SODIUM
     Dosage: 20 MG, 1X/DAY
     Route: 048
  13. PREDNISONE [Concomitant]
     Active Substance: PREDNISONE
     Dosage: TAKE (0.5MG/KG) BY ORAL PRN FLARE UPS
     Route: 048
  14. PROLIA [Concomitant]
     Active Substance: DENOSUMAB
     Dosage: 1 ML
     Route: 058
  15. TRIAMCINOLONE ACETONIDE [Concomitant]
     Active Substance: TRIAMCINOLONE ACETONIDE
     Dosage: UNK, DAILY (THIN LAYER TO THE AFFECTED AREAS)
     Route: 061
  16. VITAMIN D3 [Concomitant]
     Active Substance: CHOLECALCIFEROL
     Dosage: UNK UNK, 1X/DAY (25UG)
     Route: 048
  17. ZOLOFT [Concomitant]
     Active Substance: SERTRALINE HYDROCHLORIDE
     Dosage: 100 MG, 2X/DAY
     Route: 048

REACTIONS (4)
  - Hypoacusis [Not Recovered/Not Resolved]
  - Viral infection [Recovered/Resolved]
  - Hypertension [Unknown]
  - Off label use [Unknown]

NARRATIVE: CASE EVENT DATE: 20240301
